FAERS Safety Report 6232459-1 (Version None)
Quarter: 2009Q2

REPORT INFORMATION
  Report Type: 
  Country: None (occurrence: None)
  Receive Date: 20090617
  Receipt Date: 20090612
  Transmission Date: 20091009
  Serious: Yes (Hospitalization)
  Sender: FDA-Public Use
  Company Number: AU-ROCHE-637757

PATIENT
  Sex: Male

DRUGS (4)
  1. TORADOL [Suspect]
     Dosage: ONE TIME
     Route: 030
  2. ACETAMINOPHEN W/ CODEINE [Suspect]
     Route: 048
  3. VOLTAREN [Suspect]
     Dosage: FREQUENCY: ONE TIME
     Route: 048
  4. IRBESARTAN [Suspect]
     Indication: DRUG USE FOR UNKNOWN INDICATION
     Route: 048

REACTIONS (3)
  - HAEMATEMESIS [None]
  - MALLORY-WEISS SYNDROME [None]
  - RENAL FAILURE ACUTE [None]
